FAERS Safety Report 4533368-6 (Version None)
Quarter: 2004Q4

REPORT INFORMATION
  Report Type: 
  Country: None (occurrence: None)
  Receive Date: 20041220
  Receipt Date: 20041220
  Transmission Date: 20050328
  Serious: Yes (Hospitalization)
  Sender: FDA-Public Use
  Company Number: None

PATIENT
  Sex: Male
  Weight: 61.7 kg

DRUGS (15)
  1. GLEEVEC [Suspect]
     Indication: METASTATIC NEOPLASM
     Dosage: 200 MG BID X4/WEEK ORAL
     Route: 048
     Dates: start: 20040706, end: 20041119
  2. LIPITOR [Concomitant]
  3. CELEBREX [Concomitant]
  4. XANAX [Concomitant]
  5. RESTORIL [Concomitant]
  6. NEUTOPHASE [Concomitant]
  7. COMPAZINE [Concomitant]
  8. ARANESP [Concomitant]
  9. PROTONIX [Concomitant]
  10. REGLAN [Concomitant]
  11. CARAFATE [Concomitant]
  12. MOM [Concomitant]
  13. APAP TAB [Concomitant]
  14. CODEINE [Concomitant]
  15. TAXOL [Concomitant]

REACTIONS (2)
  - HYPERKALAEMIA [None]
  - RENAL FAILURE ACUTE [None]
